FAERS Safety Report 7996606 (Version 4)
Quarter: 2013Q2

REPORT INFORMATION
  Report Type: Report from Study
  Country: CA (occurrence: CA)
  Receive Date: 20110617
  Receipt Date: 20130516
  Transmission Date: 20140414
  Serious: Yes (Death, Hospitalization)
  Sender: FDA-Public Use
  Company Number: PHHY2011CA50573

PATIENT
  Sex: Female

DRUGS (1)
  1. SANDOSTATIN LAR [Suspect]
     Indication: CARCINOID TUMOUR
     Dosage: 40 MG ONCE A MONTH
     Route: 030
     Dates: start: 20021010

REACTIONS (6)
  - Death [Fatal]
  - Fall [Unknown]
  - Hepatic pain [Unknown]
  - Fracture [Unknown]
  - Blood pressure decreased [Unknown]
  - Fatigue [Unknown]
